FAERS Safety Report 24956451 (Version 2)
Quarter: 2025Q1

REPORT INFORMATION
  Report Type: Report from Study
  Country: US (occurrence: US)
  Receive Date: 20250211
  Receipt Date: 20250318
  Transmission Date: 20250409
  Serious: Yes (Hospitalization)
  Sender: BAUSCH AND LOMB
  Company Number: US-BAUSCH-BL-2025-001733

PATIENT
  Age: 68 Year
  Sex: Male
  Weight: 127.9 kg

DRUGS (22)
  1. XIFAXAN [Suspect]
     Active Substance: RIFAXIMIN
     Indication: Hepatic encephalopathy
     Route: 048
     Dates: start: 20230606, end: 20240829
  2. MESTINON [Suspect]
     Active Substance: PYRIDOSTIGMINE BROMIDE
     Indication: Product used for unknown indication
     Dosage: PRESCRIBED 1 TABLET TWICE DAILY. PATIENT TAKING 1-2 TABLET PER DAY.
     Route: 048
     Dates: start: 20160711
  3. PEPCID [Suspect]
     Active Substance: FAMOTIDINE
     Indication: Product used for unknown indication
     Route: 048
     Dates: start: 20240422, end: 20240619
  4. XANAX [Suspect]
     Active Substance: ALPRAZOLAM
     Indication: Product used for unknown indication
     Route: 048
     Dates: start: 20240412, end: 20240619
  5. PROAIR HFA [Concomitant]
     Active Substance: ALBUTEROL SULFATE
     Indication: Wheezing
     Dosage: 2 PUFFS BY MOUTH EVERY 6 HOURS OR AS NEEDED
     Route: 048
     Dates: start: 20240220, end: 20240619
  6. PROAIR HFA [Concomitant]
     Active Substance: ALBUTEROL SULFATE
     Indication: Dyspnoea
  7. TYLENOL [Concomitant]
     Active Substance: ACETAMINOPHEN
     Indication: Pain
     Route: 048
  8. AMITRIPTYLINE;GABAPENTIN [Concomitant]
     Indication: Pain
     Dosage: APPLY TO AFFECTED AREA TID PRN PAIN
     Route: 061
     Dates: start: 20201013, end: 20240809
  9. ASTELIN [Concomitant]
     Active Substance: AZELASTINE HYDROCHLORIDE
     Indication: Product used for unknown indication
     Dosage: PATIENT REPORTED MEDICATION
     Route: 065
  10. VIACTIV [Concomitant]
     Indication: Product used for unknown indication
     Dosage: PATIENT REPORTED MEDICATION
     Route: 048
  11. VITAMIN B12 [Concomitant]
     Active Substance: CYANOCOBALAMIN
     Indication: Product used for unknown indication
     Dosage: PATIENT REPORTED MEDICATION, 2 TABLETS BY MOUTH EVERY 48 HOURS
     Route: 048
     Dates: start: 20201117
  12. SOLIRIS [Concomitant]
     Active Substance: ECULIZUMAB
     Indication: Product used for unknown indication
     Dosage: PATIENT REPORTED MEDICATION
     Route: 042
     Dates: start: 20230310
  13. FERROUS SULFATE [Concomitant]
     Active Substance: FERROUS SULFATE
     Indication: Product used for unknown indication
     Dosage: PATIENT REPORTED MEDICATION
     Route: 048
  14. FOLIC ACID [Concomitant]
     Active Substance: FOLIC ACID
     Indication: Product used for unknown indication
     Dosage: PATIENT REPORTED MEDICATION
     Route: 048
  15. ROBINUL [Concomitant]
     Active Substance: GLYCOPYRROLATE
     Indication: Product used for unknown indication
     Dosage: PATIENT REPORTED MEDICATION
     Route: 048
  16. MUCINEX [Concomitant]
     Active Substance: GUAIFENESIN
     Indication: Product used for unknown indication
     Dosage: PATIENT REPORTED MEDICATION, ORAL
     Route: 048
  17. HYDROCORTISONE [Concomitant]
     Active Substance: HYDROCORTISONE
     Indication: Product used for unknown indication
     Route: 061
     Dates: start: 20220603
  18. NIZORAL [Concomitant]
     Active Substance: KETOCONAZOLE
     Indication: Product used for unknown indication
     Dosage: APPLY CREAM TOPICALLY TO AFFECTED AREA TWICE DAILY
     Route: 061
     Dates: start: 20211101
  19. PROBIOTICS NOS [Concomitant]
     Active Substance: PROBIOTICS NOS
     Indication: Product used for unknown indication
     Dosage: PATIENT REPORTED MEDICATION
     Route: 048
  20. DELTASONE [Concomitant]
     Active Substance: PREDNISONE
     Indication: Product used for unknown indication
     Route: 048
     Dates: start: 20220831
  21. DEMADEX [Concomitant]
     Active Substance: TORSEMIDE
     Indication: Product used for unknown indication
     Route: 048
  22. KENALOG [Concomitant]
     Active Substance: TRIAMCINOLONE ACETONIDE
     Indication: Product used for unknown indication
     Route: 061
     Dates: start: 20221215

REACTIONS (6)
  - Tremor [Unknown]
  - Panic disorder [Unknown]
  - Atrial fibrillation [Unknown]
  - Anxiety [Unknown]
  - Hypothyroidism [Unknown]
  - Family stress [Unknown]

NARRATIVE: CASE EVENT DATE: 20240401
